FAERS Safety Report 21120456 (Version 1)
Quarter: 2022Q3

REPORT INFORMATION
  Report Type: Spontaneous
  Country: US (occurrence: None)
  Receive Date: 20220722
  Receipt Date: 20220722
  Transmission Date: 20221026
  Serious: Yes (Hospitalization)
  Sender: FDA-Public Use
  Company Number: None

PATIENT
  Age: 37 Year
  Sex: Male
  Weight: 98 kg

DRUGS (2)
  1. REMDESIVIR [Suspect]
     Active Substance: REMDESIVIR
     Dosage: OTHER FREQUENCY : AM;?
     Route: 042
     Dates: start: 20211026, end: 20211028
  2. BARICITINIB [Suspect]
     Active Substance: BARICITINIB
     Route: 048
     Dates: start: 20211027, end: 20211028

REACTIONS (3)
  - Liver injury [None]
  - Aspartate aminotransferase increased [None]
  - Alanine aminotransferase increased [None]

NARRATIVE: CASE EVENT DATE: 20211028
